FAERS Safety Report 8220574-2 (Version None)
Quarter: 2012Q1

REPORT INFORMATION
  Report Type: 
  Country: None (occurrence: None)
  Receive Date: 20120320
  Receipt Date: 20120306
  Transmission Date: 20120608
  Serious: Yes (Hospitalization, Other)
  Sender: FDA-Public Use
  Company Number: NL-MYLANLABS-2012S1004968

PATIENT
  Age: 69 Year
  Sex: Female
  Weight: 124 kg

DRUGS (18)
  1. INSULIN ASPART [Concomitant]
     Indication: PRODUCT USED FOR UNKNOWN INDICATION
  2. INSULIN DETEMIR [Concomitant]
     Indication: PRODUCT USED FOR UNKNOWN INDICATION
     Route: 058
  3. ACETAMINOPHEN [Concomitant]
     Indication: PRODUCT USED FOR UNKNOWN INDICATION
     Dosage: 3D1T
     Route: 048
     Dates: start: 20110622
  4. METOPROLOL SUCCINATE [Suspect]
     Indication: TREMOR
  5. OMEPRAZOLE [Concomitant]
     Indication: PRODUCT USED FOR UNKNOWN INDICATION
     Dosage: 1D1C
     Route: 048
  6. METFORMIN HYDROCHLORIDE [Concomitant]
     Indication: PRODUCT USED FOR UNKNOWN INDICATION
     Dosage: 2D500MG
     Route: 048
  7. QUINAPRIL [Concomitant]
     Indication: PRODUCT USED FOR UNKNOWN INDICATION
     Dosage: 1D1T
  8. LACTULOSE [Concomitant]
     Indication: PRODUCT USED FOR UNKNOWN INDICATION
     Dosage: 1D8ML
     Route: 048
  9. TAMSULOSIN HCL [Suspect]
     Indication: PRODUCT USED FOR UNKNOWN INDICATION
     Dosage: ORAAL
     Dates: start: 20120209
  10. DEVARON [Concomitant]
     Indication: PRODUCT USED FOR UNKNOWN INDICATION
     Dosage: 1D1T
     Route: 048
  11. FUROSEMIDE [Concomitant]
     Indication: PRODUCT USED FOR UNKNOWN INDICATION
     Dosage: 1D1T
     Route: 048
  12. NIFEDIPINE [Concomitant]
     Indication: PRODUCT USED FOR UNKNOWN INDICATION
     Dosage: 1D1T
  13. INHIBIN /01132102/ [Suspect]
     Indication: PRODUCT USED FOR UNKNOWN INDICATION
     Dates: start: 20110101
  14. DIOVAN [Concomitant]
     Indication: PRODUCT USED FOR UNKNOWN INDICATION
     Dosage: 1D1T
     Route: 048
  15. SIMVASTATIN [Concomitant]
     Indication: PRODUCT USED FOR UNKNOWN INDICATION
     Dosage: 1D1T
     Route: 048
  16. CARDURA [Suspect]
     Indication: HYPERTENSION
     Dosage: 1D1T
     Route: 048
     Dates: start: 20120217
  17. NIFEDIPINE [Suspect]
     Indication: HYPERTENSION
     Dosage: 1D1T
     Route: 048
     Dates: start: 20111001
  18. METOPROLOL SUCCINATE [Suspect]
     Indication: MUSCLE SPASMS

REACTIONS (3)
  - BRADYCARDIA [None]
  - TREMOR [None]
  - MUSCLE SPASMS [None]
